FAERS Safety Report 23479935 (Version 2)
Quarter: 2024Q2

REPORT INFORMATION
  Report Type: Spontaneous
  Country: US (occurrence: US)
  Receive Date: 20240205
  Receipt Date: 20240408
  Transmission Date: 20240715
  Serious: No
  Sender: FDA-Public Use
  Company Number: US-UCBSA-2023049166

PATIENT
  Age: 16 Year
  Sex: Female

DRUGS (12)
  1. KEPPRA [Suspect]
     Active Substance: LEVETIRACETAM
     Indication: Seizure
     Dosage: 500 MILLIGRAM, 2X/DAY (BID)
  2. BRIVIACT [Suspect]
     Active Substance: BRIVARACETAM
     Indication: Product used for unknown indication
     Dosage: 100 MILLIGRAM, 2X/DAY (BID)
     Route: 048
  3. ZARONTIN [Suspect]
     Active Substance: ETHOSUXIMIDE
     Indication: Product used for unknown indication
     Dosage: UNK
  4. LAMICTAL [Suspect]
     Active Substance: LAMOTRIGINE
     Indication: Product used for unknown indication
     Dosage: 200 MILLIGRAM, ONCE DAILY (QD)
     Route: 048
  5. LAMICTAL [Suspect]
     Active Substance: LAMOTRIGINE
     Dosage: 100 MILLIGRAM, ONCE DAILY (QD), NIGHTLY
     Route: 048
  6. LORAZEPAM [Concomitant]
     Active Substance: LORAZEPAM
     Indication: Seizure
     Dosage: 0.5 MILLIGRAM
     Route: 048
  7. ZONISAMIDE [Concomitant]
     Active Substance: ZONISAMIDE
     Indication: Headache
     Dosage: 300 MILLIGRAM, ONCE DAILY (QD)
     Route: 048
     Dates: start: 201810
  8. ZONISAMIDE [Concomitant]
     Active Substance: ZONISAMIDE
     Dosage: 400 MILLIGRAM, ONCE DAILY (QD)
     Route: 048
  9. ESCITALOPRAM [Concomitant]
     Active Substance: ESCITALOPRAM OXALATE
     Indication: Affective disorder
     Dosage: 20 MILLIGRAM, ONCE DAILY (QD)
     Route: 048
  10. DEPAKOTE [Concomitant]
     Active Substance: DIVALPROEX SODIUM
     Indication: Product used for unknown indication
     Dosage: UNK
  11. NEURONTIN [Concomitant]
     Active Substance: GABAPENTIN
     Indication: Product used for unknown indication
     Dosage: 750 MILLIGRAM
  12. MIRENA [Concomitant]
     Active Substance: LEVONORGESTREL
     Indication: Product used for unknown indication
     Dosage: 20 MICROGRAM, ONCE DAILY (QD)
     Route: 015

REACTIONS (9)
  - Feeling abnormal [Unknown]
  - Headache [Unknown]
  - Mood swings [Unknown]
  - Brain fog [Unknown]
  - Electroencephalogram abnormal [Unknown]
  - Malaise [Unknown]
  - Dizziness [Unknown]
  - Memory impairment [Unknown]
  - Therapeutic response unexpected [Unknown]

NARRATIVE: CASE EVENT DATE: 20010801
